FAERS Safety Report 9453235 (Version 1)
Quarter: 2013Q3

REPORT INFORMATION
  Report Type: Spontaneous
  Country: JP (occurrence: JP)
  Receive Date: 20130812
  Receipt Date: 20130812
  Transmission Date: 20140515
  Serious: Yes (Hospitalization)
  Sender: FDA-Public Use
  Company Number: JP-PFIZER INC-2013232789

PATIENT
  Age: 60 Year
  Sex: Male

DRUGS (3)
  1. CELECOX [Suspect]
     Indication: BACK PAIN
     Dosage: 200 MG, DAILY
     Route: 048
     Dates: end: 20130703
  2. LYRICA [Concomitant]
     Dosage: UNK
     Dates: start: 2013
  3. METHYCOBAL [Concomitant]
     Dosage: UNK
     Route: 048
     Dates: start: 2013

REACTIONS (2)
  - Duodenal ulcer [Recovered/Resolved]
  - Ileus paralytic [Recovered/Resolved]
